FAERS Safety Report 6402740-1 (Version None)
Quarter: 2009Q4

REPORT INFORMATION
  Report Type: 
  Country: None (occurrence: None)
  Receive Date: 20091013
  Receipt Date: 20091002
  Transmission Date: 20100525
  Serious: No
  Sender: FDA-Public Use
  Company Number: 2009011073

PATIENT
  Sex: Female

DRUGS (3)
  1. FENTORA [Suspect]
     Indication: SYSTEMIC LUPUS ERYTHEMATOSUS
     Dosage: BU
     Route: 002
  2. FENTANYL CITRATE [Suspect]
     Indication: SYSTEMIC LUPUS ERYTHEMATOSUS
     Dosage: BU
     Route: 002
  3. DARVOCET (PARACETAMOL, DEXTROPROPOXYPHENE HYDROCHLORIDE) [Concomitant]

REACTIONS (1)
  - MEDICATION ERROR [None]
